FAERS Safety Report 16840080 (Version 1)
Quarter: 2019Q3

REPORT INFORMATION
  Report Type: Report from Study
  Country: CA (occurrence: CA)
  Receive Date: 20190923
  Receipt Date: 20190923
  Transmission Date: 20191005
  Serious: Yes (Hospitalization, Other)
  Sender: FDA-Public Use
  Company Number: CA-PFIZER INC-2019405195

PATIENT
  Age: 71 Year
  Sex: Female
  Weight: 116 kg

DRUGS (2)
  1. REMICADE [Suspect]
     Active Substance: INFLIXIMAB
     Indication: CROHN^S DISEASE
     Dosage: 600 MG, UNK (1 EVERY 8 WEEK(S))
     Route: 042
  2. CIPROFLOXACIN HCL [Suspect]
     Active Substance: CIPROFLOXACIN HYDROCHLORIDE
     Indication: KIDNEY INFECTION
     Dosage: UNK, 2X/DAY

REACTIONS (6)
  - Gastrointestinal infection [Recovered/Resolved]
  - Crohn^s disease [Recovered/Resolved]
  - Fall [Recovered/Resolved]
  - Gastric infection [Recovered/Resolved]
  - Diarrhoea [Recovered/Resolved]
  - Kidney infection [Recovered/Resolved]
